FAERS Safety Report 7077482-2 (Version None)
Quarter: 2010Q4

REPORT INFORMATION
  Report Type: 
  Country: None (occurrence: None)
  Receive Date: 20101101
  Receipt Date: 20101021
  Transmission Date: 20110411
  Serious: Yes (Hospitalization, Other)
  Sender: FDA-Public Use
  Company Number: BR-ELI_LILLY_AND_COMPANY-BR201010005289

PATIENT
  Sex: Male
  Weight: 86 kg

DRUGS (4)
  1. FORTEO [Suspect]
     Indication: OSTEOPOROSIS
     Dosage: UNK, DAILY (1/D)
     Route: 058
     Dates: start: 20100601
  2. LOSARTAN [Concomitant]
     Indication: BLOOD PRESSURE
     Dosage: 50 MG, 2/D
     Route: 048
     Dates: start: 20100601
  3. CLONOTRIL [Concomitant]
     Indication: SLEEP DISORDER
     Dosage: 2 MG, EACH EVENING
     Route: 048
     Dates: start: 20080101
  4. LANSOPRAZOLE [Concomitant]
     Indication: ABDOMINAL DISCOMFORT
     Dosage: 20 MG, AS NEEDED
     Route: 048

REACTIONS (7)
  - ANAEMIA [None]
  - DECREASED APPETITE [None]
  - DYSENTERY [None]
  - FALL [None]
  - FEMUR FRACTURE [None]
  - MUSCLE SPASMS [None]
  - PAIN IN EXTREMITY [None]
